FAERS Safety Report 4345840-2 (Version None)
Quarter: 2004Q2

REPORT INFORMATION
  Report Type: 
  Country: None (occurrence: None)
  Receive Date: 20040421
  Receipt Date: 20040413
  Transmission Date: 20050107
  Serious: Yes (Life-Threatening, Other)
  Sender: FDA-Public Use
  Company Number: 2004-01-0952

PATIENT
  Age: 15 Year
  Sex: Female

DRUGS (9)
  1. TEMODAL [Suspect]
     Indication: PERITONEAL NEOPLASM
     Dosage: SEE IMAGE
     Route: 048
     Dates: start: 20031209, end: 20031213
  2. TEMODAL [Suspect]
     Indication: PERITONEAL NEOPLASM
     Dosage: SEE IMAGE
     Route: 048
     Dates: start: 20040105, end: 20040109
  3. TEMODAL [Suspect]
     Indication: PERITONEAL NEOPLASM
     Dosage: SEE IMAGE
     Route: 048
     Dates: start: 20031209, end: 20040206
  4. TEMODAL [Suspect]
     Indication: PERITONEAL NEOPLASM
     Dosage: SEE IMAGE
     Route: 048
     Dates: start: 20040202, end: 20040206
  5. LASIX [Concomitant]
  6. ORACILLINETRIL [Concomitant]
  7. OMEPRAZOLE [Concomitant]
  8. SECTRAL [Concomitant]
  9. LOXEN [Concomitant]

REACTIONS (12)
  - ANAEMIA [None]
  - ARTHRALGIA [None]
  - GASTROINTESTINAL HAEMORRHAGE [None]
  - LYMPHANGITIS [None]
  - LYMPHOCYTE PERCENTAGE DECREASED [None]
  - MYALGIA [None]
  - NAUSEA [None]
  - NEOPLASM PROGRESSION [None]
  - NEUTROPHIL PERCENTAGE INCREASED [None]
  - PALLOR [None]
  - PLATELET COUNT INCREASED [None]
  - WHITE BLOOD CELL COUNT INCREASED [None]
